FAERS Safety Report 12573369 (Version 1)
Quarter: 2016Q3

REPORT INFORMATION
  Report Type: Spontaneous
  Country: DE (occurrence: DE)
  Receive Date: 20160720
  Receipt Date: 20160720
  Transmission Date: 20161109
  Serious: Yes (Other)
  Sender: FDA-Public Use
  Company Number: DE-WATSON-2016-15161

PATIENT
  Age: 29 Year
  Sex: Male
  Weight: 82 kg

DRUGS (2)
  1. CIPROFLOXACIN HYDROCHLORIDE (UNKNOWN) [Suspect]
     Active Substance: CIPROFLOXACIN HYDROCHLORIDE
     Indication: BLADDER DISCOMFORT
     Dosage: UNK
     Route: 048
     Dates: start: 201601
  2. LEVOFLOXACIN (UNKNOWN) [Suspect]
     Active Substance: LEVOFLOXACIN
     Indication: BLADDER DISCOMFORT
     Dosage: UNK
     Route: 048
     Dates: start: 201601

REACTIONS (17)
  - Gait disturbance [Not Recovered/Not Resolved]
  - Rash [Not Recovered/Not Resolved]
  - Dizziness [Not Recovered/Not Resolved]
  - Myalgia [Not Recovered/Not Resolved]
  - Palpitations [Not Recovered/Not Resolved]
  - Cardiovascular disorder [Not Recovered/Not Resolved]
  - Hot flush [Not Recovered/Not Resolved]
  - Arthralgia [Not Recovered/Not Resolved]
  - Retching [Recovering/Resolving]
  - Joint crepitation [Not Recovered/Not Resolved]
  - Photophobia [Not Recovered/Not Resolved]
  - Anxiety [Not Recovered/Not Resolved]
  - Visual impairment [Not Recovered/Not Resolved]
  - Feeling cold [Not Recovered/Not Resolved]
  - Chills [Not Recovered/Not Resolved]
  - Tendonitis [Not Recovered/Not Resolved]
  - Vomiting [Recovering/Resolving]

NARRATIVE: CASE EVENT DATE: 201601
